FAERS Safety Report 21386057 (Version 1)
Quarter: 2022Q3

REPORT INFORMATION
  Report Type: Report from Study
  Country: MX (occurrence: MX)
  Receive Date: 20220928
  Receipt Date: 20220928
  Transmission Date: 20221027
  Serious: Yes (Disabling, Other)
  Sender: FDA-Public Use
  Company Number: MX-NOVARTISPH-NVSC2022MX218850

PATIENT
  Sex: Female

DRUGS (1)
  1. GILENYA [Suspect]
     Active Substance: FINGOLIMOD HYDROCHLORIDE
     Indication: Multiple sclerosis
     Dosage: 0.5 MG, QD
     Route: 048
     Dates: start: 2021

REACTIONS (11)
  - Multiple sclerosis relapse [Not Recovered/Not Resolved]
  - Decreased activity [Unknown]
  - Mental impairment [Unknown]
  - Mood altered [Not Recovered/Not Resolved]
  - Pain in extremity [Unknown]
  - Gait disturbance [Unknown]
  - Fatigue [Unknown]
  - Insomnia [Unknown]
  - Polyp [Not Recovered/Not Resolved]
  - COVID-19 [Not Recovered/Not Resolved]
  - Hepatic steatosis [Unknown]

NARRATIVE: CASE EVENT DATE: 20210101
